FAERS Safety Report 9919936 (Version 1)
Quarter: 2014Q1

REPORT INFORMATION
  Report Type: Spontaneous
  Country: FR (occurrence: FR)
  Receive Date: 20140224
  Receipt Date: 20140224
  Transmission Date: 20141002
  Serious: Yes (Other)
  Sender: FDA-Public Use
  Company Number: FR-ELI_LILLY_AND_COMPANY-FR201402004679

PATIENT
  Age: 58 Year
  Sex: Male

DRUGS (2)
  1. CYMBALTA [Suspect]
     Indication: PRODUCT USED FOR UNKNOWN INDICATION
     Dosage: 30 MG, UNKNOWN
     Route: 065
     Dates: end: 201312
  2. CYMBALTA [Suspect]
     Dosage: 60 MG, UNKNOWN
     Route: 065
     Dates: start: 201312

REACTIONS (3)
  - Platelet count decreased [Unknown]
  - Transaminases increased [Unknown]
  - Nausea [Unknown]
